FAERS Safety Report 17840266 (Version 1)
Quarter: 2020Q2

REPORT INFORMATION
  Report Type: Spontaneous
  Country: US (occurrence: US)
  Receive Date: 20200529
  Receipt Date: 20200529
  Transmission Date: 20200714
  Serious: Yes (Other)
  Sender: FDA-Public Use
  Company Number: None

PATIENT
  Age: 67 Year
  Sex: Male
  Weight: 93.8 kg

DRUGS (12)
  1. REMDESIVIR. [Suspect]
     Active Substance: REMDESIVIR
     Indication: COVID-19
     Route: 042
  2. NOREPINEPHRINE DRIP [Concomitant]
     Dates: start: 20200526
  3. ROCURONIUM DRIP [Concomitant]
     Dates: start: 20200526
  4. LACTATED RINGERS SOLUTION [Concomitant]
     Active Substance: CALCIUM CHLORIDE\POTASSIUM CHLORIDE\SODIUM CHLORIDE\SODIUM LACTATE
     Dates: start: 20200526
  5. FUROSEMIDE IVP X1 [Concomitant]
     Dates: start: 20200526, end: 20200526
  6. PROPOFOL. [Concomitant]
     Active Substance: PROPOFOL
     Dates: start: 20200526
  7. KETAMINE [Concomitant]
     Active Substance: KETAMINE
     Dates: start: 20200527
  8. GABAPENTIN. [Concomitant]
     Active Substance: GABAPENTIN
     Dates: start: 20200526
  9. FAMOTIDINE. [Concomitant]
     Active Substance: FAMOTIDINE
     Dates: start: 20200527
  10. ACETAMINOPHEN. [Concomitant]
     Active Substance: ACETAMINOPHEN
     Dates: start: 20200525
  11. FENTANYL DRIP [Concomitant]
     Dates: start: 20200526
  12. LOVENOX [Concomitant]
     Active Substance: ENOXAPARIN SODIUM
     Dates: start: 20200524

REACTIONS (6)
  - Dehydration [None]
  - Blood bilirubin increased [None]
  - Hypotension [None]
  - Blood creatinine increased [None]
  - Acute kidney injury [None]
  - Transaminases increased [None]

NARRATIVE: CASE EVENT DATE: 20200528
